FAERS Safety Report 8214468-6 (Version None)
Quarter: 2012Q1

REPORT INFORMATION
  Report Type: 
  Country: None (occurrence: None)
  Receive Date: 20120316
  Receipt Date: 20120306
  Transmission Date: 20120608
  Serious: Yes (Hospitalization)
  Sender: FDA-Public Use
  Company Number: SE-JNJFOC-20120303281

PATIENT
  Age: 64 Year
  Sex: Female

DRUGS (5)
  1. REMICADE [Suspect]
     Indication: RHEUMATOID ARTHRITIS
     Route: 042
     Dates: start: 20100303, end: 20100930
  2. NSAID [Concomitant]
     Route: 065
     Dates: start: 20091013
  3. PREDNISONE TAB [Concomitant]
     Route: 065
     Dates: start: 20091013
  4. ANTIMALARIA MEDICATIONS [Concomitant]
     Route: 065
     Dates: start: 20091013, end: 20100614
  5. METHOTREXATE [Concomitant]
     Route: 065
     Dates: start: 20091013

REACTIONS (1)
  - ENCEPHALITIS [None]
